FAERS Safety Report 8966640 (Version 2)
Quarter: 2013Q1

REPORT INFORMATION
  Report Type: Spontaneous
  Country: JP (occurrence: JP)
  Receive Date: 20121214
  Receipt Date: 20130131
  Transmission Date: 20140127
  Serious: Yes (Hospitalization)
  Sender: FDA-Public Use
  Company Number: JP-ELI_LILLY_AND_COMPANY-JP201211006552

PATIENT
  Age: 74 Year
  Sex: Male

DRUGS (3)
  1. FORTEO [Suspect]
     Indication: OSTEOPOROSIS
     Dosage: 20 U, QD
     Route: 058
     Dates: start: 20121109, end: 20121119
  2. CELECOX [Concomitant]
     Indication: PAIN MANAGEMENT
     Dosage: 400 MG, QD
     Dates: start: 20121109, end: 20121119
  3. TAKEPRON [Concomitant]
     Indication: GASTRITIS PROPHYLAXIS
     Dosage: UNK
     Dates: start: 20121109, end: 20121119

REACTIONS (1)
  - Renal failure acute [Recovered/Resolved]
